FAERS Safety Report 9162413 (Version 1)
Quarter: 2013Q1

REPORT INFORMATION
  Report Type: Report from Study
  Country: DE (occurrence: DE)
  Receive Date: 20130314
  Receipt Date: 20130314
  Transmission Date: 20140127
  Serious: Yes (Other)
  Sender: FDA-Public Use
  Company Number: DE-ASTELLAS-2013US002732

PATIENT
  Sex: Female
  Weight: 56 kg

DRUGS (9)
  1. ERLOTINIB TABLET [Suspect]
     Indication: NON-SMALL CELL LUNG CANCER
     Dosage: 150 MG, UID/QD
     Route: 048
     Dates: start: 200603, end: 200604
  2. ERLOTINIB TABLET [Suspect]
     Dosage: 100 MG, UID/QD
     Route: 048
     Dates: start: 200604, end: 200606
  3. ERLOTINIB TABLET [Suspect]
     Dosage: 50 MG, UID/QD
     Route: 048
     Dates: start: 200606, end: 200610
  4. ERLOTINIB TABLET [Suspect]
     Dosage: 25 MG, UID/QD
     Route: 048
     Dates: start: 200610, end: 200709
  5. ERLOTINIB TABLET [Suspect]
     Dosage: 50 MG, UID/QD
     Route: 048
     Dates: start: 200804
  6. LISINOPRIL [Concomitant]
     Indication: HYPERTENSION
     Dosage: UNK
     Route: 065
  7. ESIDRIX [Concomitant]
     Indication: HYPERTENSION
     Dosage: UNK
     Route: 065
  8. AMLODIPIN                          /00972401/ [Concomitant]
     Indication: HYPERTENSION
     Dosage: UNK
     Route: 065
  9. PANTOZOL [Concomitant]
     Indication: GASTRITIS
     Dosage: UNK
     Route: 065

REACTIONS (5)
  - Cardiac failure [Unknown]
  - Malignant neoplasm progression [Unknown]
  - Rash [Unknown]
  - Diarrhoea [Unknown]
  - Paronychia [Recovered/Resolved]
